FAERS Safety Report 4954524-9 (Version None)
Quarter: 2006Q1

REPORT INFORMATION
  Report Type: 
  Country: None (occurrence: None)
  Receive Date: 20060322
  Receipt Date: 20060308
  Transmission Date: 20060701
  Serious: Yes (Other)
  Sender: FDA-Public Use
  Company Number: 2006034496

PATIENT
  Age: 72 Year
  Sex: Female

DRUGS (3)
  1. LIPITOR [Suspect]
     Indication: DYSLIPIDAEMIA
     Dosage: 10 MG (10 MG, 1 IN 1 D), ORAL
     Route: 048
     Dates: start: 20030302
  2. HOMEOPATIC PREPARATION (HOMEOPATIC PREPARATION) [Concomitant]
  3. PHARMATON (CAFFEINE, DISODIUM EMTHANEARSONATE, NICOTINAMIDE, PYRIDOXIN [Concomitant]

REACTIONS (1)
  - HEART RATE DECREASED [None]
